FAERS Safety Report 10183657 (Version 2)
Quarter: 2014Q2

REPORT INFORMATION
  Report Type: Report from Study
  Country: BR (occurrence: BR)
  Receive Date: 20140520
  Receipt Date: 20140607
  Transmission Date: 20141212
  Serious: Yes (Other)
  Sender: FDA-Public Use
  Company Number: PHHY2014BR055533

PATIENT
  Age: 29 Year
  Sex: Female
  Weight: 72.5 kg

DRUGS (6)
  1. SANDOSTATIN LAR [Suspect]
     Indication: PITUITARY TUMOUR
     Dosage: 40 MG, 1 AMPOULE OF 30MG AND 1 AMPOULE OF 10MG
     Dates: start: 2010
  2. SANDOSTATIN LAR [Suspect]
     Dosage: 10 MG, UNK
  3. SANDOSTATIN LAR [Suspect]
     Dosage: 40 MG, 1 AMPOULE OF 30MG AND 1 AMPOULE OF 10MG
  4. DOSTINEX [Suspect]
     Indication: NEOPLASM
     Dosage: 1 DF, DAILY
     Dates: start: 2009
  5. PURAN T4 [Concomitant]
     Indication: THYROID NEOPLASM
     Dosage: 1 DF, DAILY
  6. PREDNISOLONE [Concomitant]
     Indication: ARTHRALGIA
     Dosage: 1 DF, DAILY

REACTIONS (28)
  - Viral infection [Recovered/Resolved]
  - Diarrhoea [Recovered/Resolved]
  - Vomiting [Recovered/Resolved]
  - Loss of consciousness [Recovered/Resolved]
  - Thyroid cancer [Unknown]
  - Gestational diabetes [Recovered/Resolved]
  - Hypoglycaemia [Unknown]
  - Syncope [Unknown]
  - Disease progression [Unknown]
  - Pain [Recovered/Resolved]
  - Contrast media allergy [Unknown]
  - Urticaria [Recovering/Resolving]
  - Dyspnoea [Recovering/Resolving]
  - Swelling [Unknown]
  - Blood growth hormone increased [Not Recovered/Not Resolved]
  - Injection site mass [Recovering/Resolving]
  - Injection site bruising [Unknown]
  - Injection site haemorrhage [Unknown]
  - Injection site reaction [Unknown]
  - Malaise [Unknown]
  - Arthralgia [Recovered/Resolved]
  - Decreased immune responsiveness [Recovering/Resolving]
  - Aphthous stomatitis [Recovered/Resolved]
  - Retching [Unknown]
  - Headache [Not Recovered/Not Resolved]
  - Injection site pain [Recovering/Resolving]
  - Exposure during pregnancy [Unknown]
  - Drug ineffective [Unknown]
